FAERS Safety Report 5491461-8 (Version None)
Quarter: 2007Q4

REPORT INFORMATION
  Report Type: 
  Country: None (occurrence: None)
  Receive Date: 20071018
  Receipt Date: 20071003
  Transmission Date: 20080405
  Serious: Yes (Hospitalization, Other)
  Sender: FDA-Public Use
  Company Number: 2007VX001000

PATIENT
  Age: 48 Year
  Sex: Female
  Weight: 90.7194 kg

DRUGS (6)
  1. INTERFERON ALFACON-1 [Suspect]
     Indication: HEPATITIS C
     Dosage: 9 UG; QD; SC
     Route: 058
     Dates: start: 20061110
  2. RIBAVIRIN [Concomitant]
  3. NEURONTIN [Concomitant]
  4. PRENATAL VITAMINS [Concomitant]
  5. VITAMIN E [Concomitant]
  6. OMEGA 3 [Concomitant]

REACTIONS (3)
  - BREAST CANCER FEMALE [None]
  - DRUG INEFFECTIVE [None]
  - FULL BLOOD COUNT DECREASED [None]
